FAERS Safety Report 18439607 (Version 3)
Quarter: 2020Q4

REPORT INFORMATION
  Report Type: Spontaneous
  Country: JP (occurrence: JP)
  Receive Date: 20201029
  Receipt Date: 20201030
  Transmission Date: 20210114
  Serious: Yes (Death, Other)
  Sender: FDA-Public Use
  Company Number: JP-ABBVIE-20K-087-3629346-00

PATIENT
  Age: 80 Year
  Sex: Female

DRUGS (3)
  1. RITUXIMAB. [Concomitant]
     Active Substance: RITUXIMAB
     Indication: CHRONIC LYMPHOCYTIC LEUKAEMIA
     Dosage: (GENETICAL RECOMBINATION)
  2. VENCLEXTA [Suspect]
     Active Substance: VENETOCLAX
     Indication: CHRONIC LYMPHOCYTIC LEUKAEMIA
     Route: 048
     Dates: start: 20200730, end: 2020
  3. VENCLEXTA [Suspect]
     Active Substance: VENETOCLAX
     Dosage: INCREASED
     Route: 048
     Dates: start: 2020, end: 2020

REACTIONS (4)
  - Pancytopenia [Recovered/Resolved]
  - Tumour lysis syndrome [Unknown]
  - Death [Fatal]
  - Renal failure [Recovered/Resolved]

NARRATIVE: CASE EVENT DATE: 2020
